FAERS Safety Report 23369230 (Version 1)
Quarter: 2024Q1

REPORT INFORMATION
  Report Type: Spontaneous
  Country: GB (occurrence: GB)
  Receive Date: 20240105
  Receipt Date: 20240105
  Transmission Date: 20240409
  Serious: Yes (Disabling, Other)
  Sender: FDA-Public Use
  Company Number: None

PATIENT
  Age: 73 Year
  Weight: 67 kg

DRUGS (5)
  1. ATORVASTATIN [Suspect]
     Active Substance: ATORVASTATIN
     Indication: Blood cholesterol increased
     Route: 065
     Dates: start: 20231102
  2. LACRI-LUBE [Concomitant]
     Dosage: USE AS DIRECTED
     Dates: start: 20231101
  3. CLOBETASOL PROPIONATE [Concomitant]
     Active Substance: CLOBETASOL PROPIONATE
     Dosage: USE AS NEEDED
     Dates: start: 20221028
  4. ESTRADIOL [Concomitant]
     Active Substance: ESTRADIOL
     Dosage: USE TWICE WEEKLY
     Dates: start: 20221028, end: 20231004
  5. DOXYCYCLINE [Concomitant]
     Active Substance: DOXYCYCLINE
     Dates: start: 20221028, end: 20231004

REACTIONS (3)
  - Insomnia [Recovering/Resolving]
  - Hot flush [Recovering/Resolving]
  - Nightmare [Recovering/Resolving]
